FAERS Safety Report 4936314-6 (Version None)
Quarter: 2006Q1

REPORT INFORMATION
  Report Type: 
  Country: None (occurrence: None)
  Receive Date: 20060127
  Receipt Date: 20051127
  Transmission Date: 20060701
  Serious: Yes (Other)
  Sender: FDA-Public Use
  Company Number: 2005159178

PATIENT
  Age: 50 Year
  Sex: Male
  Weight: 62.5964 kg

DRUGS (7)
  1. LYRICA [Suspect]
     Indication: NEUROPATHY
     Dosage: 150 MG (75 MG, 2 IN 1 D)
     Dates: start: 20051104
  2. METHOTREXATE [Concomitant]
  3. PREDNISOLONGE(PREDNISOLONE) [Concomitant]
  4. PLAVIX [Concomitant]
  5. PLAXIL (PAROXEINE HYDROCHLORIDE) [Concomitant]
  6. VITAMINS (VITAMINS) [Concomitant]
  7. ASPIRIN [Concomitant]

REACTIONS (3)
  - DIZZINESS [None]
  - LOGORRHOEA [None]
  - PAIN IN EXTREMITY [None]
